FAERS Safety Report 8928528 (Version 1)
Quarter: 2012Q4

REPORT INFORMATION
  Report Type: Spontaneous
  Country: US (occurrence: None)
  Receive Date: 20121126
  Receipt Date: 20121126
  Transmission Date: 20130627
  Serious: Yes (Other)
  Sender: FDA-Public Use
  Company Number: None

PATIENT
  Age: 4 Year
  Sex: Female
  Weight: 13.61 kg

DRUGS (2)
  1. AZITHRPMYCIN 200MG/5ML SUSP 15ML [Suspect]
     Indication: SINUS INFECTION
     Dosage: 5ml day 1 then give 2.5ml
     Dates: start: 20121116, end: 20121120
  2. PREDNISOLONE SOD 15MG/5ML SOLPHOS [Suspect]
     Indication: COUGH
     Dosage: 5ml every day for 4 days
     Dates: start: 20121116, end: 20121117

REACTIONS (3)
  - Product label issue [None]
  - Drug prescribing error [None]
  - Drug administration error [None]
